FAERS Safety Report 10570739 (Version 1)
Quarter: 2014Q4

REPORT INFORMATION
  Report Type: Spontaneous
  Country: US (occurrence: None)
  Receive Date: 20141106
  Receipt Date: 20141106
  Transmission Date: 20150529
  Serious: Yes (Hospitalization)
  Sender: FDA-Public Use
  Company Number: None

PATIENT
  Age: 56 Year
  Sex: Female
  Weight: 61 kg

DRUGS (4)
  1. CARBOPLATIN. [Suspect]
     Active Substance: CARBOPLATIN
  2. TAXOL [Suspect]
     Active Substance: PACLITAXEL
  3. NEULASTA [Suspect]
     Active Substance: PEGFILGRASTIM
  4. CISPLATIN. [Suspect]
     Active Substance: CISPLATIN

REACTIONS (3)
  - Pyrexia [None]
  - Malaise [None]
  - Dyspnoea exertional [None]

NARRATIVE: CASE EVENT DATE: 20140720
